FAERS Safety Report 18233347 (Version 3)
Quarter: 2021Q2

REPORT INFORMATION
  Report Type: Spontaneous
  Country: CA (occurrence: CA)
  Receive Date: 20200904
  Receipt Date: 20210421
  Transmission Date: 20210717
  Serious: Yes (Hospitalization, Other)
  Sender: FDA-Public Use
  Company Number: CA-TEVA-2020-CA-1822259

PATIENT
  Age: 58 Year
  Sex: Male
  Weight: 98 kg

DRUGS (26)
  1. IRINOTECAN HYDROCHLORIDE. [Suspect]
     Active Substance: IRINOTECAN HYDROCHLORIDE
     Indication: COLON CANCER METASTATIC
     Route: 042
  2. DEXAMETHASONE. [Concomitant]
     Active Substance: DEXAMETHASONE
  3. DIPHENHYDRAMINE. [Concomitant]
     Active Substance: DIPHENHYDRAMINE
  4. BEVACIZUMAB. [Suspect]
     Active Substance: BEVACIZUMAB
     Indication: COLON CANCER METASTATIC
     Route: 042
  5. EPLERENONE. [Concomitant]
     Active Substance: EPLERENONE
  6. ENTRESTO [Concomitant]
     Active Substance: SACUBITRIL\VALSARTAN
     Route: 065
  7. 5?FU [FLUOROURACIL] [Concomitant]
     Active Substance: FLUOROURACIL
  8. PROCHLORPERAZINE. [Concomitant]
     Active Substance: PROCHLORPERAZINE
  9. ROSUVASTATIN. [Concomitant]
     Active Substance: ROSUVASTATIN
  10. VENLAFAXINE [Concomitant]
     Active Substance: VENLAFAXINE HYDROCHLORIDE
  11. INSULIN LISPRO [Concomitant]
     Active Substance: INSULIN LISPRO
  12. ELIQUIS [Concomitant]
     Active Substance: APIXABAN
     Route: 065
  13. FLUOROURACIL. [Concomitant]
     Active Substance: FLUOROURACIL
     Route: 065
  14. APIXABAN [Concomitant]
     Active Substance: APIXABAN
  15. FERROUS GLUCONATE [Concomitant]
     Active Substance: FERROUS GLUCONATE
  16. LOPERAMIDE [Concomitant]
     Active Substance: LOPERAMIDE
  17. METFORMIN [Concomitant]
     Active Substance: METFORMIN HYDROCHLORIDE
  18. EMPAGLIFLOZIN/LINAGLIPTIN [Concomitant]
     Active Substance: EMPAGLIFLOZIN\LINAGLIPTIN
  19. FUROSEMIDE. [Concomitant]
     Active Substance: FUROSEMIDE
  20. LANSOPRAZOLE. [Concomitant]
     Active Substance: LANSOPRAZOLE
  21. HUMALOG [Concomitant]
     Active Substance: INSULIN LISPRO
     Route: 065
  22. ATROPINE. [Concomitant]
     Active Substance: ATROPINE
  23. BISOPROLOL [Concomitant]
     Active Substance: BISOPROLOL
  24. CLOPIDOGREL [Concomitant]
     Active Substance: CLOPIDOGREL BISULFATE
  25. ENTRESTO [Concomitant]
     Active Substance: SACUBITRIL\VALSARTAN
  26. ONDANSETRON [Concomitant]
     Active Substance: ONDANSETRON

REACTIONS (6)
  - Atrial fibrillation [Unknown]
  - Diarrhoea [Unknown]
  - Product dose omission issue [Unknown]
  - Dehydration [Unknown]
  - Malaise [Unknown]
  - Pyrexia [Unknown]
